FAERS Safety Report 7322515-9 (Version None)
Quarter: 2011Q1

REPORT INFORMATION
  Report Type: 
  Country: None (occurrence: None)
  Receive Date: 20110215
  Receipt Date: 20110203
  Transmission Date: 20110831
  Serious: Yes (Other)
  Sender: FDA-Public Use
  Company Number: 026832

PATIENT
  Age: 22 Month
  Sex: Male

DRUGS (1)
  1. KEPPRA [Suspect]
     Indication: EPILEPSY
     Dosage: 250 MG BID ORAL
     Route: 048
     Dates: start: 20100801

REACTIONS (5)
  - PRESYNCOPE [None]
  - INCORRECT ROUTE OF DRUG ADMINISTRATION [None]
  - SYRINGE ISSUE [None]
  - ASPHYXIA [None]
  - PRODUCT QUALITY ISSUE [None]
